FAERS Safety Report 5028243-7 (Version None)
Quarter: 2006Q2

REPORT INFORMATION
  Report Type: 
  Country: None (occurrence: None)
  Receive Date: 20060503
  Receipt Date: 20060307
  Transmission Date: 20061013
  Serious: No
  Sender: FDA-Public Use
  Company Number: FACT0600149

PATIENT
  Age: 65 Year
  Sex: Female

DRUGS (1)
  1. FACTIVE [Suspect]
     Indication: RESPIRATORY TRACT INFECTION BACTERIAL
     Dates: start: 20060301, end: 20060101

REACTIONS (3)
  - GLOSSODYNIA [None]
  - PARAESTHESIA ORAL [None]
  - SWOLLEN TONGUE [None]
